FAERS Safety Report 8457047 (Version 5)
Quarter: 2013Q3

REPORT INFORMATION
  Report Type: Report from Study
  Country: MX (occurrence: MX)
  Receive Date: 20120313
  Receipt Date: 20130702
  Transmission Date: 20140515
  Serious: Yes (Other)
  Sender: FDA-Public Use
  Company Number: PHHY2011MX63942

PATIENT
  Age: 65 Year
  Sex: Female

DRUGS (3)
  1. GALVUS MET [Suspect]
     Indication: DIABETES MELLITUS
     Dosage: 3 DF (850MG MET/ 50MG VILDA), DAILY
     Route: 048
     Dates: start: 201002, end: 2012
  2. DIOVAN [Suspect]
     Indication: HYPERTENSION
     Dosage: 1 DF (80 MG) DAILY
     Route: 048
     Dates: start: 201003
  3. METFORMIN [Concomitant]
     Indication: DIABETES MELLITUS
     Dosage: 3 DF DAILY

REACTIONS (2)
  - Pituitary tumour benign [Recovering/Resolving]
  - Diabetes mellitus inadequate control [Recovered/Resolved]
